FAERS Safety Report 9259250 (Version 3)
Quarter: 2013Q3

REPORT INFORMATION
  Report Type: Spontaneous
  Country: AU (occurrence: AU)
  Receive Date: 20130426
  Receipt Date: 20130710
  Transmission Date: 20140515
  Serious: Yes (Death, Other)
  Sender: FDA-Public Use
  Company Number: AU-B.I. PHARMACEUTICALS,INC./RIDGEFIELD-2013-AU-00494AU

PATIENT
  Age: 73 Year
  Sex: Male
  Weight: 100 kg

DRUGS (5)
  1. PRADAXA [Suspect]
     Indication: ATRIAL FIBRILLATION
     Dosage: 300 MG
     Dates: start: 20111012
  2. GALVUMET [Concomitant]
     Dosage: 50/1000 MG
  3. CRESTOR [Concomitant]
     Dosage: 5 MG
  4. CREON [Concomitant]
     Dosage: 10,000
  5. PARIET [Concomitant]
     Dosage: 20 MG

REACTIONS (1)
  - Silent myocardial infarction [Fatal]
